FAERS Safety Report 4438251-2 (Version None)
Quarter: 2004Q3

REPORT INFORMATION
  Report Type: 
  Country: None (occurrence: None)
  Receive Date: 20040831
  Receipt Date: 20040629
  Transmission Date: 20050211
  Serious: No
  Sender: FDA-Public Use
  Company Number: US-GLAXOSMITHKLINE-A0516440A

PATIENT
  Age: 59 Year
  Sex: Female

DRUGS (6)
  1. WELLBUTRIN XL [Suspect]
     Indication: ILL-DEFINED DISORDER
     Dosage: 150MG TWICE PER DAY
     Route: 048
     Dates: start: 20040201
  2. GLUCOPHAGE [Concomitant]
  3. GLUCOVANCE [Concomitant]
  4. ESTROGEN REPLACEMENT [Concomitant]
  5. XANAX [Concomitant]
  6. PROTON PUMP INHIBITOR [Concomitant]

REACTIONS (4)
  - AGGRESSION [None]
  - AGITATION [None]
  - ANXIETY [None]
  - ENERGY INCREASED [None]
